FAERS Safety Report 5103887-2 (Version None)
Quarter: 2006Q3

REPORT INFORMATION
  Report Type: 
  Country: None (occurrence: None)
  Receive Date: 20060913
  Receipt Date: 20060904
  Transmission Date: 20061208
  Serious: Yes (Other)
  Sender: FDA-Public Use
  Company Number: NL-GLAXOSMITHKLINE-B0437830A

PATIENT
  Age: 59 Year
  Sex: Male

DRUGS (2)
  1. FLUTICASONE PROPIONATE + SALMETEROL XINAFOATE [Suspect]
     Indication: CHRONIC OBSTRUCTIVE PULMONARY DISEASE
     Route: 055
     Dates: start: 20060115, end: 20060829
  2. THEOLAIR [Suspect]
     Dosage: 350MG TWICE PER DAY
     Dates: start: 20060115

REACTIONS (8)
  - COLD SWEAT [None]
  - FATIGUE [None]
  - MUSCLE CONTRACTIONS INVOLUNTARY [None]
  - MYALGIA [None]
  - OEDEMA [None]
  - OSTEOPOROSIS [None]
  - PALPITATIONS [None]
  - TACHYCARDIA [None]
